FAERS Safety Report 8434403 (Version 2)
Quarter: 2012Q4

REPORT INFORMATION
  Report Type: 
  Country: DE (occurrence: DE)
  Receive Date: 20120301
  Receipt Date: 20121001
  Transmission Date: 20130627
  Serious: Yes (Death, Life-Threatening, Hospitalization, Other)
  Sender: FDA-Public Use
  Company Number: DE-RANBAXY-2012RR-52877

PATIENT
  Age: 71 Year
  Sex: Male
  Weight: 53 kg

DRUGS (10)
  1. IBUPROFEN [Suspect]
     Indication: PAIN
     Dosage: 600 mg, bid
     Route: 048
     Dates: start: 20101213, end: 20110123
  2. IBUPROFEN [Suspect]
     Indication: PAIN
     Dosage: 600 mg, tid
     Route: 048
     Dates: start: 20110124, end: 20110214
  3. IBUPROFEN [Suspect]
     Indication: PAIN
     Dosage: 200 mg, 1/week
     Route: 048
     Dates: start: 20101213, end: 20110318
  4. NOVALGIN [Suspect]
     Indication: PAIN
     Dosage: 1000 mg 4/week
     Route: 048
     Dates: start: 20101213, end: 201103
  5. CLINDAMYCIN [Suspect]
     Indication: EXTREMITY NECROSIS
     Dosage: 600 mg, qd
     Route: 065
     Dates: start: 20110125, end: 20110213
  6. OMEP HEXAL [Concomitant]
     Indication: PRODUCT USED FOR UNKNOWN INDICATION
     Dosage: 20 mg, 1/week
     Route: 048
     Dates: start: 20101213
  7. DELIX [Concomitant]
     Indication: PRODUCT USED FOR UNKNOWN INDICATION
     Dosage: 5 mg, 1/week
     Route: 048
     Dates: start: 20101213
  8. ASS [Concomitant]
     Indication: PRODUCT USED FOR UNKNOWN INDICATION
     Dosage: 100 mg, qd
     Route: 048
     Dates: start: 20110214
  9. SIMVASTATIN [Concomitant]
     Indication: PRODUCT USED FOR UNKNOWN INDICATION
     Dosage: 40 mg, qd
     Route: 048
     Dates: start: 20110214
  10. RAMIPRIL PLUS [Concomitant]
     Indication: HYPERTENSION
     Dosage: 1 DF, qd
     Route: 048
     Dates: start: 20110214, end: 20110317

REACTIONS (1)
  - Renal failure acute [Recovered/Resolved]
